FAERS Safety Report 8234422-8 (Version None)
Quarter: 2012Q1

REPORT INFORMATION
  Report Type: 
  Country: None (occurrence: None)
  Receive Date: 20120326
  Receipt Date: 20120321
  Transmission Date: 20120608
  Serious: Yes (Other)
  Sender: FDA-Public Use
  Company Number: US-PFIZER INC-2012074247

PATIENT
  Sex: Female
  Weight: 70.748 kg

DRUGS (1)
  1. CHANTIX [Suspect]
     Indication: SMOKING CESSATION THERAPY
     Dosage: 0.5 MG, 1X/DAY
     Route: 048

REACTIONS (7)
  - INSOMNIA [None]
  - GASTRIC ULCER [None]
  - ANKLE FRACTURE [None]
  - RIB FRACTURE [None]
  - OSTEOARTHRITIS [None]
  - FALL [None]
  - CARPAL TUNNEL SYNDROME [None]
